FAERS Safety Report 9090303 (Version 2)
Quarter: 2013Q1

REPORT INFORMATION
  Report Type: Report from Study
  Country: NO (occurrence: NO)
  Receive Date: 20130131
  Receipt Date: 20130212
  Transmission Date: 20140127
  Serious: Yes (Other)
  Sender: FDA-Public Use
  Company Number: NO-ROCHE-1185126

PATIENT
  Age: 52 Year
  Sex: Female
  Weight: 74 kg

DRUGS (2)
  1. VEMURAFENIB [Suspect]
     Indication: METASTATIC MALIGNANT MELANOMA
     Dosage: STRENGTH 240 MG, LAST DOSE PRIOR TP SAE: 16/MAY/2012
     Route: 048
     Dates: start: 20120506
  2. APOCILLIN [Suspect]
     Indication: SINUSITIS
     Dosage: 1G + 1G + 2G
     Route: 065
     Dates: start: 20120516, end: 20120518

REACTIONS (1)
  - Hypersensitivity [Recovered/Resolved]
